FAERS Safety Report 5266532-1 (Version None)
Quarter: 2007Q1

REPORT INFORMATION
  Report Type: 
  Country: None (occurrence: None)
  Receive Date: 20070315
  Receipt Date: 20070313
  Transmission Date: 20070707
  Serious: Yes (Hospitalization)
  Sender: FDA-Public Use
  Company Number: NO-ROXANE LABORATORIES, INC-2007-BP-03487BP

PATIENT
  Sex: Female
  Weight: 88 kg

DRUGS (3)
  1. WARFARIN SODIUM [Suspect]
     Indication: CEREBROVASCULAR ACCIDENT PROPHYLAXIS
     Route: 048
  2. WARFARIN SODIUM [Suspect]
     Indication: THROMBOSIS PROPHYLAXIS
  3. NAPROXEN [Suspect]
     Indication: GOUT
     Route: 048
     Dates: start: 20010101, end: 20070221

REACTIONS (2)
  - HAEMOGLOBIN DECREASED [None]
  - INTERNATIONAL NORMALISED RATIO INCREASED [None]
